FAERS Safety Report 7814523-6 (Version None)
Quarter: 2011Q4

REPORT INFORMATION
  Report Type: 
  Country: None (occurrence: None)
  Receive Date: 20111014
  Receipt Date: 20111004
  Transmission Date: 20120403
  Serious: Yes (Other)
  Sender: FDA-Public Use
  Company Number: US-US-EMD SERONO, INC.-7087865

PATIENT
  Sex: Female

DRUGS (9)
  1. REBIF [Suspect]
     Indication: MULTIPLE SCLEROSIS
     Route: 058
     Dates: start: 20110203, end: 20110921
  2. DROSPIRENONE AND ETHINYL ESTRADIOL [Concomitant]
  3. LORAZEPAM [Concomitant]
  4. FISH OIL [Concomitant]
  5. BACLOFEN [Concomitant]
  6. LEXAPRO [Concomitant]
  7. VITAMIN D [Concomitant]
  8. IBUPROFEN [Concomitant]
     Indication: PREMEDICATION
  9. ZANAFLEX [Concomitant]

REACTIONS (4)
  - DIABETES MELLITUS [None]
  - URINARY INCONTINENCE [None]
  - INJECTION SITE ERYTHEMA [None]
  - CENTRAL NERVOUS SYSTEM LESION [None]
